FAERS Safety Report 6065467-4 (Version None)
Quarter: 2009Q1

REPORT INFORMATION
  Report Type: 
  Country: None (occurrence: None)
  Receive Date: 20090130
  Receipt Date: 20090119
  Transmission Date: 20090719
  Serious: Yes (Other)
  Sender: FDA-Public Use
  Company Number: 2009AL000382

PATIENT
  Age: 43 Year
  Sex: Male
  Weight: 100 kg

DRUGS (4)
  1. FEVERALL [Suspect]
     Indication: INTENTIONAL OVERDOSE
     Dosage: 5 GM;QD;PO
     Route: 048
     Dates: start: 20080217, end: 20080217
  2. SYMBICORT [Concomitant]
  3. ALCOHOL [Concomitant]
  4. ANTIDEPRESSANTS [Concomitant]

REACTIONS (1)
  - INTENTIONAL OVERDOSE [None]
